FAERS Safety Report 4299460-9 (Version None)
Quarter: 2004Q1

REPORT INFORMATION
  Report Type: 
  Country: None (occurrence: None)
  Receive Date: 20040217
  Receipt Date: 20040202
  Transmission Date: 20041129
  Serious: Yes (Hospitalization)
  Sender: FDA-Public Use
  Company Number: 2004006827

PATIENT
  Age: 76 Year
  Sex: Female

DRUGS (5)
  1. ZYRTEC [Suspect]
     Indication: ILL-DEFINED DISORDER
     Dosage: ORAL
     Route: 048
     Dates: start: 20020915, end: 20031119
  2. DILTIAZEM HYDROCHLORIDE [Suspect]
     Indication: HYPERTENSION
     Dosage: 300 MG (DIALY), ORAL
     Route: 048
     Dates: start: 19830101, end: 20031126
  3. IRBESARTAN (IRBESARTAN) [Suspect]
     Indication: HYPERTENSION
     Dosage: ORAL
     Route: 048
     Dates: start: 20000101, end: 20031113
  4. INDAPAMIDE [Suspect]
     Indication: HYPERTENSION
     Dosage: ORAL
     Route: 048
     Dates: start: 20021015, end: 20031113
  5. SERETIDE MITE (FLUTICASONE PROPIONATE, SALMETEROL XINAFOATE) [Concomitant]

REACTIONS (3)
  - CULTURE URINE POSITIVE [None]
  - CUTANEOUS VASCULITIS [None]
  - LEUKOCYTOCLASTIC VASCULITIS [None]
